FAERS Safety Report 14267072 (Version 2)
Quarter: 2018Q1

REPORT INFORMATION
  Report Type: Spontaneous
  Country: US (occurrence: US)
  Receive Date: 20171211
  Receipt Date: 20180122
  Transmission Date: 20180508
  Serious: No
  Sender: FDA-Public Use
  Company Number: US-PFIZER INC-2017524976

PATIENT
  Age: 56 Year
  Sex: Female

DRUGS (3)
  1. CELLCEPT [Concomitant]
     Active Substance: MYCOPHENOLATE MOFETIL\MYCOPHENOLATE MOFETIL HYDROCHLORIDE
     Dosage: 500 MG, 2X/DAY [5 YRS. AGO]
     Dates: end: 201710
  2. XELJANZ [Suspect]
     Active Substance: TOFACITINIB CITRATE
     Indication: DERMATOMYOSITIS
     Dosage: 5MG ONE TABLET TWICE A DAY
     Route: 048
     Dates: start: 201709
  3. XELJANZ [Suspect]
     Active Substance: TOFACITINIB CITRATE
     Indication: SKIN DISORDER
     Dosage: 10MG, TWO TABLET  TWICE A DAY
     Dates: start: 20171222

REACTIONS (3)
  - Drug ineffective for unapproved indication [Not Recovered/Not Resolved]
  - Product use issue [Not Recovered/Not Resolved]
  - Asthenia [Unknown]

NARRATIVE: CASE EVENT DATE: 201709
